FAERS Safety Report 13826425 (Version 3)
Quarter: 2017Q4

REPORT INFORMATION
  Report Type: Spontaneous
  Country: US (occurrence: US)
  Receive Date: 20170802
  Receipt Date: 20171103
  Transmission Date: 20180320
  Serious: No
  Sender: FDA-Public Use
  Company Number: US-BIOGEN-2014BI005531

PATIENT
  Age: 39 Year
  Sex: Male

DRUGS (10)
  1. REBIF [Concomitant]
     Active Substance: INTERFERON BETA-1A
     Indication: PRODUCT USED FOR UNKNOWN INDICATION
     Route: 065
  2. AMPYRA [Concomitant]
     Active Substance: DALFAMPRIDINE
     Indication: GAIT DISTURBANCE
     Route: 065
     Dates: start: 20170830
  3. KEFLEX [Concomitant]
     Active Substance: CEPHALEXIN
     Indication: PRODUCT USED FOR UNKNOWN INDICATION
     Route: 065
  4. TECFIDERA [Suspect]
     Active Substance: DIMETHYL FUMARATE
     Indication: MULTIPLE SCLEROSIS
     Route: 048
     Dates: start: 20130623, end: 20131029
  5. RITUXAN [Concomitant]
     Active Substance: RITUXIMAB
     Route: 065
     Dates: start: 20130626, end: 20130626
  6. TECFIDERA [Suspect]
     Active Substance: DIMETHYL FUMARATE
     Route: 065
  7. GILENYA [Concomitant]
     Active Substance: FINGOLIMOD HYDROCHLORIDE
     Indication: PRODUCT USED FOR UNKNOWN INDICATION
     Route: 065
  8. BETASERON [Concomitant]
     Active Substance: INTERFERON BETA-1B
     Indication: PRODUCT USED FOR UNKNOWN INDICATION
     Route: 065
  9. RITUXAN [Concomitant]
     Active Substance: RITUXIMAB
     Indication: PRODUCT USED FOR UNKNOWN INDICATION
     Route: 065
  10. RITUXAN [Concomitant]
     Active Substance: RITUXIMAB
     Route: 065
     Dates: start: 20130626, end: 20131029

REACTIONS (3)
  - Underdose [Recovered/Resolved]
  - Drug ineffective [Recovered/Resolved with Sequelae]
  - Gastrointestinal disorder [Unknown]

NARRATIVE: CASE EVENT DATE: 2013
